FAERS Safety Report 7240189-2 (Version None)
Quarter: 2011Q1

REPORT INFORMATION
  Report Type: 
  Country: None (occurrence: None)
  Receive Date: 20110124
  Receipt Date: 20110111
  Transmission Date: 20110831
  Serious: Yes (Hospitalization)
  Sender: FDA-Public Use
  Company Number: US-ELI_LILLY_AND_COMPANY-US201012000042

PATIENT
  Sex: Male

DRUGS (7)
  1. VALIUM [Concomitant]
  2. FLUOXETINE [Concomitant]
  3. COCAINE [Concomitant]
  4. KLONOPIN [Concomitant]
  5. ZYPREXA [Suspect]
     Indication: BIPOLAR DISORDER
     Dosage: 20 MG, DAILY (1/D)
     Dates: start: 20091001, end: 20100601
  6. VYVANSE [Concomitant]
  7. ZYPREXA [Suspect]
     Dosage: 20 MG, DAILY (1/D)
     Dates: start: 20101007

REACTIONS (6)
  - DRUG DOSE OMISSION [None]
  - BIPOLAR I DISORDER [None]
  - AGGRESSION [None]
  - DELUSION [None]
  - INJURY [None]
  - INSOMNIA [None]
